FAERS Safety Report 21873371 (Version 1)
Quarter: 2023Q1

REPORT INFORMATION
  Report Type: Report from Study
  Country: CN (occurrence: CN)
  Receive Date: 20230117
  Receipt Date: 20230117
  Transmission Date: 20230417
  Serious: Yes (Death, Other)
  Sender: FDA-Public Use
  Company Number: CN-JNJFOC-20230114984

PATIENT

DRUGS (1)
  1. SPORANOX [Suspect]
     Active Substance: ITRACONAZOLE
     Indication: Fungal infection
     Route: 065

REACTIONS (54)
  - Death [Fatal]
  - Respiratory failure [Unknown]
  - Neurotoxicity [Unknown]
  - Hallucination [Unknown]
  - Electrocardiogram QT prolonged [Unknown]
  - Multiple organ dysfunction syndrome [Unknown]
  - Pneumonia [Unknown]
  - Septic shock [Unknown]
  - Cholestasis [Unknown]
  - Abortion spontaneous [Unknown]
  - Pancytopenia [Unknown]
  - Rhabdomyolysis [Unknown]
  - Pathogen resistance [Unknown]
  - Sepsis [Unknown]
  - Cardiac arrest [Unknown]
  - Torsade de pointes [Unknown]
  - Renal failure [Unknown]
  - Acute kidney injury [Unknown]
  - Neutropenia [Unknown]
  - Drug-induced liver injury [Unknown]
  - Renal impairment [Unknown]
  - Cardiac failure [Unknown]
  - Cardiac failure congestive [Unknown]
  - Hepatotoxicity [Unknown]
  - Neuropathy peripheral [Unknown]
  - Hypokalaemia [Unknown]
  - Pseudoaldosteronism [Unknown]
  - Drug resistance [Unknown]
  - Alanine aminotransferase increased [Unknown]
  - Blister [Unknown]
  - Liver function test abnormal [Unknown]
  - Aspartate aminotransferase increased [Unknown]
  - Hepatic enzyme increased [Unknown]
  - Infection [Unknown]
  - Rash [Unknown]
  - Pyrexia [Unknown]
  - Electrocardiogram QT interval [Unknown]
  - Hepatic function abnormal [Unknown]
  - Oedema peripheral [Unknown]
  - Pruritus [Unknown]
  - Photosensitivity reaction [Unknown]
  - Urticaria [Unknown]
  - Dyspnoea [Unknown]
  - Confusional state [Unknown]
  - Nausea [Unknown]
  - Visual impairment [Unknown]
  - Vision blurred [Unknown]
  - Paraesthesia [Unknown]
  - Hypertension [Unknown]
  - Erythema [Unknown]
  - Pseudohyponatraemia [Unknown]
  - Drug level increased [Unknown]
  - Symmetrical drug-related intertriginous and flexural exanthema [Unknown]
  - Exposure during pregnancy [Unknown]
